FAERS Safety Report 6235677-1 (Version None)
Quarter: 2009Q2

REPORT INFORMATION
  Report Type: 
  Country: None (occurrence: None)
  Receive Date: 20090616
  Receipt Date: 20090608
  Transmission Date: 20091009
  Serious: Yes (Hospitalization)
  Sender: FDA-Public Use
  Company Number: ZYD-09-AE-070

PATIENT
  Age: 55 Year
  Sex: Female

DRUGS (2)
  1. RIBAVIRIN [Suspect]
     Indication: HEPATITIS C
     Dosage: 400MG
     Dates: start: 20080524
  2. PEG-INTERFERON (ROCHE) [Suspect]
     Indication: HEPATITIS C
     Dosage: 135MCG
     Dates: start: 20080524

REACTIONS (4)
  - CHEST PAIN [None]
  - DYSGEUSIA [None]
  - HERNIA [None]
  - PNEUMONIA [None]
